FAERS Safety Report 4294319-5 (Version None)
Quarter: 2004Q1

REPORT INFORMATION
  Report Type: 
  Country: None (occurrence: None)
  Receive Date: 20040212
  Receipt Date: 20040212
  Transmission Date: 20041129
  Serious: Yes (Life-Threatening, Hospitalization)
  Sender: FDA-Public Use
  Company Number: None

PATIENT
  Age: 89 Year
  Sex: Female
  Weight: 62.5964 kg

DRUGS (2)
  1. ALPHAGAN [Suspect]
     Indication: GLAUCOMA
     Dosage: 1 DROP IN BOTH EYES 3 TIMES DAILY AT 8 HR INTERVALS
     Route: 047
     Dates: start: 20030922
  2. ALPHAGAN [Suspect]
     Indication: GLAUCOMA
     Dosage: 1 DROP IN BOTH EYES 3 TIMES DAILY AT 8 HR INTERVALS
     Route: 047
     Dates: start: 20030923

REACTIONS (7)
  - BLOOD PRESSURE DECREASED [None]
  - BLOOD PRESSURE IMMEASURABLE [None]
  - DIZZINESS [None]
  - FEELING ABNORMAL [None]
  - LOSS OF CONSCIOUSNESS [None]
  - PULSE ABSENT [None]
  - SOMNOLENCE [None]
